FAERS Safety Report 6964428-8 (Version None)
Quarter: 2010Q3

REPORT INFORMATION
  Report Type: 
  Country: None (occurrence: None)
  Receive Date: 20100903
  Receipt Date: 20100824
  Transmission Date: 20110219
  Serious: Yes (Other)
  Sender: FDA-Public Use
  Company Number: BR-PFIZER INC-2010106306

PATIENT
  Age: 55 Year
  Sex: Female
  Weight: 58 kg

DRUGS (5)
  1. LIPITOR [Suspect]
     Indication: BLOOD TRIGLYCERIDES INCREASED
     Dosage: 40 MG, 1X/DAY
     Route: 048
     Dates: start: 20100821, end: 20100823
  2. DIMETICONE [Concomitant]
     Dosage: UNK
     Dates: start: 20100821
  3. OMEPRAZOLE [Concomitant]
     Dosage: UNK
     Dates: start: 20100821
  4. AMLODIPINE/ATENOLOL/CHLORTHALIDONE [Concomitant]
     Indication: HYPERTENSION
     Dosage: [AMLODIPINE 2.5 MG]/[ATENOLOL 25 MG]/[CHLORTHALIDONE 12.5 MG]
     Dates: start: 20050101
  5. LEVOTHYROXINE SODIUM [Concomitant]
     Indication: HYPOTHYROIDISM
     Dosage: 100 MG, UNK

REACTIONS (9)
  - ABDOMINAL DISCOMFORT [None]
  - ABDOMINAL DISTENSION [None]
  - COLD SWEAT [None]
  - GASTRIC ULCER [None]
  - HEADACHE [None]
  - HEART RATE INCREASED [None]
  - NAUSEA [None]
  - PERIPHERAL COLDNESS [None]
  - TREMOR [None]
